FAERS Safety Report 11742464 (Version 1)
Quarter: 2015Q4

REPORT INFORMATION
  Report Type: Report from Study
  Country: GB (occurrence: GB)
  Receive Date: 20151116
  Receipt Date: 20151116
  Transmission Date: 20160304
  Serious: Yes (Other)
  Sender: FDA-Public Use
  Company Number: GB-ROCHE-1658491

PATIENT

DRUGS (3)
  1. SOFOSBUVIR [Suspect]
     Active Substance: SOFOSBUVIR
     Indication: HEPATITIS C
     Route: 048
  2. RIBAVIRIN. [Suspect]
     Active Substance: RIBAVIRIN
     Indication: HEPATITIS C
     Route: 048
  3. PEG-INTERFERON ALFA 2A [Suspect]
     Active Substance: PEGINTERFERON ALFA-2A
     Indication: HEPATITIS C
     Route: 058

REACTIONS (43)
  - Alcohol abuse [Unknown]
  - Nausea [Unknown]
  - Vomiting [Unknown]
  - Hyperkalaemia [Unknown]
  - Alcohol withdrawal syndrome [Unknown]
  - Atrial fibrillation [Unknown]
  - Depression [Unknown]
  - White blood cell disorder [Unknown]
  - Blood creatine phosphokinase abnormal [Unknown]
  - Hyperbilirubinaemia [Unknown]
  - Abdominal pain [Unknown]
  - Adenocarcinoma of colon [Unknown]
  - Cellulitis [Unknown]
  - Drug abuse [Unknown]
  - Lymphocyte count abnormal [Unknown]
  - Neutrophil count abnormal [Unknown]
  - Flank pain [Unknown]
  - Pneumonia [Unknown]
  - Subcutaneous abscess [Unknown]
  - International normalised ratio abnormal [Unknown]
  - Snake bite [Unknown]
  - Syncope [Unknown]
  - Chest pain [Unknown]
  - Hallucination [Unknown]
  - Hepatocellular carcinoma [Unknown]
  - Orthostatic hypotension [Unknown]
  - Pleuritic pain [Unknown]
  - Suicidal ideation [Unknown]
  - Acute coronary syndrome [Unknown]
  - Musculoskeletal chest pain [Unknown]
  - Overdose [Unknown]
  - Respiratory tract infection [Unknown]
  - Alanine aminotransferase abnormal [Unknown]
  - Amylase abnormal [Unknown]
  - Pancreatitis [Unknown]
  - Arthritis [Unknown]
  - Haemoglobin decreased [Unknown]
  - Loss of consciousness [Unknown]
  - Platelet disorder [Unknown]
  - Activated partial thromboplastin time abnormal [Unknown]
  - Aspartate aminotransferase abnormal [Unknown]
  - Lipase abnormal [Unknown]
  - Blood glucose abnormal [Unknown]
